FAERS Safety Report 8604181-5 (Version None)
Quarter: 2012Q3

REPORT INFORMATION
  Report Type: 
  Country: None (occurrence: None)
  Receive Date: 20120820
  Receipt Date: 20120813
  Transmission Date: 20120928
  Serious: No
  Sender: FDA-Public Use
  Company Number: US-PFIZER INC-2012198591

PATIENT
  Age: 55 Year
  Sex: Female
  Weight: 85.7 kg

DRUGS (3)
  1. LYRICA [Concomitant]
     Indication: NERVE INJURY
     Dosage: 25 MG CAPSULE IN THE MORNING AND 75 MG CAPSULE AT NIGHT, 2X/DAY
     Route: 048
  2. VESICARE [Suspect]
     Indication: URINARY INCONTINENCE
     Dosage: UNK
  3. DETROL LA [Suspect]
     Indication: URINARY INCONTINENCE
     Dosage: 4 MG, 1X/DAY
     Route: 048
     Dates: end: 20120801

REACTIONS (2)
  - DRUG INEFFECTIVE [None]
  - INSOMNIA [None]
